FAERS Safety Report 6069485-1 (Version None)
Quarter: 2009Q1

REPORT INFORMATION
  Report Type: 
  Country: None (occurrence: None)
  Receive Date: 20090206
  Receipt Date: 20090202
  Transmission Date: 20090719
  Serious: Yes (Other)
  Sender: FDA-Public Use
  Company Number: US-ASTRAZENECA-2009UW02947

PATIENT
  Age: 26642 Day
  Sex: Female

DRUGS (3)
  1. CRESTOR [Suspect]
     Route: 048
     Dates: start: 20090130
  2. LORATADINE [Concomitant]
     Indication: MULTIPLE ALLERGIES
  3. THYROID MEDICATION [Concomitant]

REACTIONS (2)
  - PRURITUS GENERALISED [None]
  - SYSTEMIC LUPUS ERYTHEMATOSUS [None]
